FAERS Safety Report 4383795-5 (Version None)
Quarter: 2004Q2

REPORT INFORMATION
  Report Type: 
  Country: None (occurrence: None)
  Receive Date: 20040608
  Receipt Date: 20030925
  Transmission Date: 20050107
  Serious: Yes (Other)
  Sender: FDA-Public Use
  Company Number: 200313489BCC

PATIENT
  Age: 87 Year
  Sex: Male
  Weight: 83.9154 kg

DRUGS (4)
  1. ALEVE [Suspect]
     Indication: ARTHRITIS
     Dosage: 440 MG, BID ORAL
     Route: 048
  2. ASPIRIN [Suspect]
     Dosage: 81 MG, TOTAL DAILY, ORAL
     Route: 048
  3. HYTRIN [Concomitant]
  4. LANOXIN [Concomitant]

REACTIONS (2)
  - GASTRIC ULCER HAEMORRHAGE [None]
  - HAEMATOCHEZIA [None]
